FAERS Safety Report 5192767-2 (Version None)
Quarter: 2006Q4

REPORT INFORMATION
  Report Type: 
  Country: None (occurrence: None)
  Receive Date: 20061220
  Receipt Date: 20061208
  Transmission Date: 20070319
  Serious: Yes (Life-Threatening)
  Sender: FDA-Public Use
  Company Number: 2006AL003876

PATIENT
  Age: 59 Year
  Sex: Male

DRUGS (1)
  1. SPIRONOLACTONE [Suspect]
     Dosage: 200 MG; QD; PO
     Route: 048
     Dates: start: 20060806, end: 20061125

REACTIONS (1)
  - NEUTROPENIA [None]
